FAERS Safety Report 11784782 (Version 1)
Quarter: 2015Q4

REPORT INFORMATION
  Report Type: Report from Study
  Country: US (occurrence: US)
  Receive Date: 20151130
  Receipt Date: 20151130
  Transmission Date: 20160305
  Serious: Yes (Life-Threatening, Hospitalization, Other)
  Sender: FDA-Public Use
  Company Number: US-ROCHE-784095

PATIENT
  Age: 49 Year
  Sex: Female
  Weight: 106.2 kg

DRUGS (4)
  1. PEGFILGRASTIM [Suspect]
     Active Substance: PEGFILGRASTIM
     Indication: UTERINE LEIOMYOSARCOMA
     Dosage: ROUTE: REPORTED AS SQ, FREQ: ON DAY 9 OR DAY 10. LAST DOSE PRIOR TO SAE: 09/APR/2011.
     Route: 058
  2. GEMCITABINE HYDROCHLORIDE. [Suspect]
     Active Substance: GEMCITABINE HYDROCHLORIDE
     Indication: UTERINE LEIOMYOSARCOMA
     Dosage: FREQ: OVER 90 MIN ON DAYS 1 AND 8. LAST DOSE PRIOR TO SAE: 08/APR/2011.
     Route: 042
  3. BEVACIZUMAB [Suspect]
     Active Substance: BEVACIZUMAB
     Indication: UTERINE LEIOMYOSARCOMA
     Dosage: FREQ: OVER 30-90 MIN ON DAY 1. LAST DOSE PRIOR TO SAE: 18/FEB/2011.
     Route: 042
     Dates: start: 20100108
  4. DOCETAXEL. [Suspect]
     Active Substance: DOCETAXEL
     Indication: UTERINE LEIOMYOSARCOMA
     Dosage: FREQ: OVER 60 MIN ON DAY 8. LAST DOSE PRIOR TO SAE: 08 APR 2011.
     Route: 042
     Dates: start: 20100108

REACTIONS (3)
  - Pericardial effusion [Recovering/Resolving]
  - Pleural effusion [Recovering/Resolving]
  - Small intestinal obstruction [Recovering/Resolving]

NARRATIVE: CASE EVENT DATE: 20110415
